FAERS Safety Report 13731685 (Version 2)
Quarter: 2017Q3

REPORT INFORMATION
  Report Type: Report from Study
  Country: JP (occurrence: JP)
  Receive Date: 20170707
  Receipt Date: 20170810
  Transmission Date: 20171127
  Serious: Yes (Hospitalization)
  Sender: FDA-Public Use
  Company Number: US-ASTRAZENECA-2017SE69387

PATIENT
  Age: 21730 Day
  Sex: Male
  Weight: 75.1 kg

DRUGS (19)
  1. LIDOCAINE HYDROCHLORIDE. [Concomitant]
     Active Substance: LIDOCAINE HYDROCHLORIDE
     Indication: CATHETER MANAGEMENT
     Dosage: SINGLE DOSE
     Route: 061
     Dates: start: 20170627, end: 20170627
  2. LIDOCAINE. [Concomitant]
     Active Substance: LIDOCAINE
     Indication: DEVICE RELATED INFECTION
     Dosage: 18.0MG ONCE/SINGLE ADMINISTRATION
     Route: 062
     Dates: start: 20170627, end: 20170627
  3. PRASUGREL. [Concomitant]
     Active Substance: PRASUGREL
     Indication: ANTIPLATELET THERAPY
     Route: 048
     Dates: start: 20170620, end: 20170627
  4. PRASUGREL. [Concomitant]
     Active Substance: PRASUGREL
     Indication: ANGINA PECTORIS
     Route: 048
     Dates: start: 20170627
  5. HEPARIN SODIUM. [Concomitant]
     Active Substance: HEPARIN SODIUM
     Indication: CATHETER MANAGEMENT
     Dosage: SINGLE DOSE, 8000
     Dates: start: 20170627, end: 20170627
  6. NITROGLYCERIN. [Concomitant]
     Active Substance: NITROGLYCERIN
     Indication: CATHETER MANAGEMENT
     Dosage: SINGLE DOSE
     Route: 013
     Dates: start: 20170627, end: 20170627
  7. NICORANDIL [Concomitant]
     Active Substance: NICORANDIL
     Indication: CATHETER MANAGEMENT
     Dosage: SINGLE DOSE
     Route: 042
     Dates: start: 20170627, end: 20170627
  8. ASPIRIN. [Concomitant]
     Active Substance: ASPIRIN
     Indication: ANGINA PECTORIS
     Route: 048
     Dates: start: 20170617, end: 20170627
  9. PRASUGREL. [Concomitant]
     Active Substance: PRASUGREL
     Indication: ANGINA PECTORIS
     Route: 048
     Dates: start: 20170620, end: 20170627
  10. CLOTIAZEPAM [Concomitant]
     Active Substance: CLOTIAZEPAM
     Indication: PREMEDICATION
     Dosage: 5.0MG ONCE/SINGLE ADMINISTRATION
     Route: 048
     Dates: start: 20170627, end: 20170627
  11. REBAMIPIDE [Concomitant]
     Active Substance: REBAMIPIDE
     Indication: GASTRIC MUCOSAL LESION
     Route: 048
     Dates: start: 20170617, end: 20170627
  12. IOPAMIDOL [Concomitant]
     Active Substance: IOPAMIDOL
     Indication: CATHETER MANAGEMENT
     Dosage: SINGLE DOSE
     Route: 013
     Dates: start: 20170627, end: 20170627
  13. NICORANDIL [Concomitant]
     Active Substance: NICORANDIL
     Indication: ANGINA PECTORIS
     Route: 048
     Dates: start: 20170617, end: 20170627
  14. PRASUGREL. [Concomitant]
     Active Substance: PRASUGREL
     Indication: ANTIPLATELET THERAPY
     Route: 048
     Dates: start: 20170627
  15. EZETIMIBE. [Concomitant]
     Active Substance: EZETIMIBE
     Indication: HYPERLIPIDAEMIA
     Dosage: ONGOING
     Route: 048
     Dates: start: 20170627
  16. PRAVASTATIN SODIUM. [Concomitant]
     Active Substance: PRAVASTATIN SODIUM
     Indication: HYPERLIPIDAEMIA
     Dosage: ONGOING
     Route: 048
     Dates: start: 20170627
  17. NICORANDIL [Concomitant]
     Active Substance: NICORANDIL
     Indication: ANGINA PECTORIS
     Dosage: ONGOING
     Route: 048
     Dates: start: 20170627
  18. GLYCOPYRRONIUM + FORMOTEROL FUMARATE INHALATION AEROSOL (PEARL) [Suspect]
     Active Substance: GLYCOPYRRONIUM\FORMOTEROL FUMARATE
     Indication: CHRONIC OBSTRUCTIVE PULMONARY DISEASE
     Dosage: 14.4/9.6 ???G EX-ACTUATOR BID
     Route: 055
     Dates: start: 20161126
  19. TAKELDA COMBINATION TABLETS [Concomitant]
     Active Substance: ASPIRIN\LANSOPRAZOLE
     Indication: GASTRIC ULCER HAEMORRHAGE
     Dosage: ONGOING
     Route: 048
     Dates: start: 20170628

REACTIONS (1)
  - Angina pectoris [Recovered/Resolved]

NARRATIVE: CASE EVENT DATE: 20170610
